FAERS Safety Report 4631096-X (Version None)
Quarter: 2005Q2

REPORT INFORMATION
  Report Type: 
  Country: None (occurrence: None)
  Receive Date: 20050406
  Receipt Date: 20050406
  Transmission Date: 20051028
  Serious: Yes (Hospitalization)
  Sender: FDA-Public Use
  Company Number: None

PATIENT
  Age: 45 Year
  Sex: Female
  Weight: 54.8 kg

DRUGS (6)
  1. EFFEXOR [Suspect]
     Indication: ANXIETY
  2. ZOLOFT [Concomitant]
  3. LANTUS [Concomitant]
  4. RISPERDAL [Concomitant]
  5. TRAZODONE HCL [Concomitant]
  6. VICODIN [Concomitant]

REACTIONS (5)
  - ABDOMINAL PAIN [None]
  - ALCOHOLISM [None]
  - NAUSEA [None]
  - PANCREATITIS [None]
  - VOMITING [None]
